FAERS Safety Report 6347296-7 (Version None)
Quarter: 2009Q3

REPORT INFORMATION
  Report Type: 
  Country: None (occurrence: None)
  Receive Date: 20090910
  Receipt Date: 20090831
  Transmission Date: 20100115
  Serious: Yes (Other)
  Sender: FDA-Public Use
  Company Number: PHEH2009US10522

PATIENT
  Sex: Female

DRUGS (6)
  1. RECLAST [Suspect]
     Dosage: UNK
     Dates: start: 20090821
  2. SIMVASTATIN [Suspect]
     Dosage: UNK
  3. CELEBREX [Concomitant]
     Dosage: 200 MG, UNK
  4. CARBAMAZEPINE [Concomitant]
     Dosage: 100 MG, UNK
  5. CARBAMAZEPINE [Concomitant]
     Dosage: 200 MG, UNK
  6. CLORAZEPATE DIPOTASSIUM [Concomitant]
     Dosage: 7.5 MG, UNK

REACTIONS (8)
  - ARTHRALGIA [None]
  - CHILLS [None]
  - DECREASED APPETITE [None]
  - DIARRHOEA [None]
  - DIZZINESS [None]
  - PYREXIA [None]
  - URINARY INCONTINENCE [None]
  - VOMITING [None]
